FAERS Safety Report 8437883-4 (Version None)
Quarter: 2012Q2

REPORT INFORMATION
  Report Type: 
  Country: None (occurrence: None)
  Receive Date: 20120323
  Receipt Date: 20110819
  Transmission Date: 20120825
  Serious: Yes (Hospitalization)
  Sender: FDA-Public Use
  Company Number: 163-21880-11062516

PATIENT
  Age: 71 Year
  Sex: Male

DRUGS (7)
  1. REVLIMID [Suspect]
     Indication: MULTIPLE MYELOMA
     Dosage: 25 MG, DAILY FOR 21 DAYS, PO
     Route: 048
     Dates: start: 20110609
  2. CYPROHEPATADINE HCL (CYPROHEPTADINE) [Concomitant]
  3. PRILOSEC [Concomitant]
  4. METFORMIN HCL [Concomitant]
  5. ZOVIRAX [Concomitant]
  6. ZYLOPRIM [Concomitant]
  7. ASPIRIN [Concomitant]

REACTIONS (4)
  - FALL [None]
  - INFECTION [None]
  - DEHYDRATION [None]
  - RED BLOOD CELL COUNT DECREASED [None]
